FAERS Safety Report 11927706 (Version 1)
Quarter: 2016Q1

REPORT INFORMATION
  Report Type: Spontaneous
  Country: GB (occurrence: GB)
  Receive Date: 20160119
  Receipt Date: 20160119
  Transmission Date: 20160526
  Serious: Yes (Hospitalization)
  Sender: FDA-Public Use
  Company Number: GB-BIOGEN-2016BI00172981

PATIENT
  Sex: Male

DRUGS (1)
  1. AVONEX [Suspect]
     Active Substance: INTERFERON BETA-1A
     Indication: MULTIPLE SCLEROSIS
     Route: 065
     Dates: start: 201204

REACTIONS (6)
  - Foreign body [Unknown]
  - Gait disturbance [Unknown]
  - Injection site pain [Unknown]
  - Injection site swelling [Unknown]
  - Renal disorder [Unknown]
  - Hypertrophic cardiomyopathy [Unknown]
